FAERS Safety Report 18806367 (Version 1)
Quarter: 2021Q1

REPORT INFORMATION
  Report Type: Spontaneous
  Country: US (occurrence: US)
  Receive Date: 20210128
  Receipt Date: 20210128
  Transmission Date: 20210419
  Serious: No
  Sender: FDA-Public Use
  Company Number: US-ENDO PHARMACEUTICALS INC-2020-006323

PATIENT

DRUGS (1)
  1. ADRENALIN [Suspect]
     Active Substance: EPINEPHRINE
     Indication: HAEMORRHAGE PROPHYLAXIS
     Dosage: UNK UNKNOWN, SINGLE
     Route: 065
     Dates: start: 20200916

REACTIONS (3)
  - Off label use [Recovered/Resolved]
  - Haemorrhage [Unknown]
  - Product colour issue [Unknown]
